FAERS Safety Report 13975627 (Version 6)
Quarter: 2025Q4

REPORT INFORMATION
  Report Type: Spontaneous
  Country: AU (occurrence: AU)
  Receive Date: 20170915
  Receipt Date: 20251022
  Transmission Date: 20260117
  Serious: Yes (Life-Threatening, Hospitalization, Other)
  Sender: MYLAN
  Company Number: AU-002147023-PHHY2012AU030424

PATIENT
  Sex: Male

DRUGS (16)
  1. VALPROIC ACID [Suspect]
     Active Substance: VALPROIC ACID
     Indication: Prophylaxis
     Dosage: 800 MILLIGRAM, PM
     Dates: start: 201110, end: 20120328
  2. CLOZARIL [Suspect]
     Active Substance: CLOZAPINE
     Indication: Schizophrenia
     Dosage: 550 MILLIGRAM
  3. CLOZARIL [Suspect]
     Active Substance: CLOZAPINE
     Dosage: 350 MG
  4. CLOZARIL [Suspect]
     Active Substance: CLOZAPINE
     Dosage: 500 MG, PM
     Dates: start: 201108, end: 20120328
  5. CLOZARIL [Suspect]
     Active Substance: CLOZAPINE
     Dosage: 425 MG, PM
     Dates: start: 201110, end: 20120328
  6. CLOZARIL [Suspect]
     Active Substance: CLOZAPINE
     Dosage: UNK
     Dates: start: 20170816, end: 20170907
  7. LITHIUM [Suspect]
     Active Substance: LITHIUM
     Indication: Product used for unknown indication
     Dosage: 1 GRAM, UNK
  8. LITHIUM [Suspect]
     Active Substance: LITHIUM
     Dosage: 250 MG, AM
     Dates: start: 201108
  9. LITHIUM [Suspect]
     Active Substance: LITHIUM
     Dosage: 500 MG, PM
     Dates: start: 201108
  10. QUETIAPINE [Concomitant]
     Active Substance: QUETIAPINE
     Indication: Product used for unknown indication
     Dosage: 1 GRAM, PM
  11. HALOPERIDOL [Concomitant]
     Active Substance: HALOPERIDOL
     Indication: Product used for unknown indication
     Dosage: 10 MILLIGRAM, PM (10MG NOCTE)
  12. HALOPERIDOL [Concomitant]
     Active Substance: HALOPERIDOL
     Dosage: 10 MG, PM
  13. THYROXINE [Concomitant]
     Active Substance: LEVOTHYROXINE
     Indication: Product used for unknown indication
     Dosage: 250 MICROGRAM, AM (250 UG, MANE)
  14. GEMFIBROZIL [Concomitant]
     Active Substance: GEMFIBROZIL
     Indication: Product used for unknown indication
     Dosage: 600 MILLIGRAM, BID (600MG BID)
  15. ATORVASTATIN [Concomitant]
     Active Substance: ATORVASTATIN
     Indication: Product used for unknown indication
     Dosage: 20 MILLIGRAM, PM (20 MG, NOCTE)
  16. QUETIAPINE [Concomitant]
     Active Substance: QUETIAPINE
     Indication: Product used for unknown indication
     Dosage: UNK, PM

REACTIONS (11)
  - Agranulocytosis [Unknown]
  - Schizophrenia [Unknown]
  - Neutropenia [Recovered/Resolved]
  - White blood cell count decreased [Recovered/Resolved]
  - Viral infection [Unknown]
  - Haemoglobin decreased [Not Recovered/Not Resolved]
  - Antipsychotic drug level increased [Not Recovered/Not Resolved]
  - Haematocrit decreased [Not Recovered/Not Resolved]
  - Malaise [Unknown]
  - Lymphocyte count increased [Unknown]
  - White blood cell count increased [Unknown]

NARRATIVE: CASE EVENT DATE: 20110101
